FAERS Safety Report 19809751 (Version 1)
Quarter: 2021Q3

REPORT INFORMATION
  Report Type: Spontaneous
  Country: US (occurrence: US)
  Receive Date: 20210909
  Receipt Date: 20210909
  Transmission Date: 20211014
  Serious: Yes (Hospitalization, Other)
  Sender: FDA-Public Use
  Company Number: US-AUROBINDO-AUR-APL-2021-038393

PATIENT
  Age: 65 Year
  Sex: Male

DRUGS (1)
  1. EVOMELA [Suspect]
     Active Substance: MELPHALAN HYDROCHLORIDE
     Indication: AMYLOIDOSIS
     Dosage: 100 MILLIGRAM/SQ. METER (DAY 02 AND DAY 03)
     Route: 042
     Dates: start: 20210823, end: 20210824

REACTIONS (5)
  - Nausea [Unknown]
  - Thrombocytopenia [Unknown]
  - Hypotension [Unknown]
  - Diarrhoea [Unknown]
  - Febrile neutropenia [Unknown]

NARRATIVE: CASE EVENT DATE: 20210902
